FAERS Safety Report 4816773-X (Version None)
Quarter: 2005Q4

REPORT INFORMATION
  Report Type: 
  Country: None (occurrence: None)
  Receive Date: 20051031
  Receipt Date: 20051031
  Transmission Date: 20060501
  Serious: Yes (Life-Threatening, Hospitalization)
  Sender: FDA-Public Use
  Company Number: None

PATIENT
  Age: 56 Year
  Sex: Female
  Weight: 64 kg

DRUGS (7)
  1. CYMBALTA [Suspect]
     Indication: DEPRESSION
     Dosage: 60MG  ONCE A DAY   PO
     Route: 048
     Dates: start: 20050901, end: 20051001
  2. CYMBALTA [Suspect]
     Indication: DEPRESSION
     Dosage: 30MG    ONCE A DAY   PO
     Route: 048
     Dates: start: 20040901, end: 20051001
  3. CELEBREX [Concomitant]
  4. MS CONTIN [Concomitant]
  5. PHENERGAN [Concomitant]
  6. ATIVAN [Concomitant]
  7. REMERON [Concomitant]

REACTIONS (1)
  - HEPATIC FAILURE [None]
